FAERS Safety Report 10024660 (Version 1)
Quarter: 2014Q1

REPORT INFORMATION
  Report Type: Spontaneous
  Country: US (occurrence: US)
  Receive Date: 20140320
  Receipt Date: 20140320
  Transmission Date: 20141002
  Serious: No
  Sender: FDA-Public Use
  Company Number: US-009507513-1403USA002452

PATIENT
  Age: 29 Year
  Sex: Female

DRUGS (1)
  1. NUVARING [Suspect]
     Indication: CONTRACEPTION
     Dosage: 3 WEEKS AND 2 DAYS, 1 WEEK BREAK, 1 RING
     Route: 067
     Dates: start: 201103

REACTIONS (8)
  - Fungal infection [Unknown]
  - Pyrexia [Unknown]
  - Burning sensation [Unknown]
  - Pruritus [Unknown]
  - Back pain [Unknown]
  - Headache [Unknown]
  - Incorrect drug administration duration [Unknown]
  - Incorrect drug administration duration [Unknown]
